FAERS Safety Report 10957643 (Version 1)
Quarter: 2015Q1

REPORT INFORMATION
  Report Type: Spontaneous
  Country: US (occurrence: None)
  Receive Date: 20150325
  Receipt Date: 20150325
  Transmission Date: 20150721
  Serious: Yes (Hospitalization, Disabling, Other)
  Sender: FDA-Public Use
  Company Number: None

PATIENT
  Age: 41 Year
  Sex: Female
  Weight: 83.92 kg

DRUGS (7)
  1. FISH OIL [Concomitant]
     Active Substance: FISH OIL
  2. NIACIN. [Concomitant]
     Active Substance: NIACIN
  3. BABY ASPIRIN [Concomitant]
     Active Substance: ASPIRIN
  4. PACEMAKER [Concomitant]
  5. TURMERIC [Concomitant]
     Active Substance: TURMERIC
  6. CELEXA [Concomitant]
     Active Substance: CITALOPRAM HYDROBROMIDE
  7. AMNESTEEM [Suspect]
     Active Substance: ISOTRETINOIN
     Indication: ACNE
     Dosage: 2 PILLS ONCE DAILY TAKEN BY MOUTH
     Route: 048
     Dates: start: 20141219, end: 20150302

REACTIONS (13)
  - Antinuclear antibody positive [None]
  - Cyst rupture [None]
  - Double stranded DNA antibody positive [None]
  - Weight decreased [None]
  - Endometriosis [None]
  - Fatigue [None]
  - Alanine aminotransferase abnormal [None]
  - Aspartate aminotransferase abnormal [None]
  - Toxicity to various agents [None]
  - Fall [None]
  - Haemorrhage [None]
  - Dizziness [None]
  - Gamma-glutamyltransferase abnormal [None]

NARRATIVE: CASE EVENT DATE: 20150205
